FAERS Safety Report 14414806 (Version 1)
Quarter: 2018Q1

REPORT INFORMATION
  Report Type: Spontaneous
  Country: US (occurrence: US)
  Receive Date: 20180120
  Receipt Date: 20180120
  Transmission Date: 20180509
  Serious: No
  Sender: FDA-Public Use
  Company Number: PHEH2018US002109

PATIENT
  Sex: Male
  Weight: 83.45 kg

DRUGS (1)
  1. LIDOCAINE, PRILOCAINE [Suspect]
     Active Substance: LIDOCAINE\PRILOCAINE
     Indication: PRODUCT USED FOR UNKNOWN INDICATION
     Dosage: UNK UNK, PRN
     Route: 061

REACTIONS (1)
  - Drug ineffective [Not Recovered/Not Resolved]
